FAERS Safety Report 10506862 (Version 1)
Quarter: 2014Q3

REPORT INFORMATION
  Report Type: Spontaneous
  Country: US (occurrence: None)
  Receive Date: 20140915
  Receipt Date: 20140915
  Transmission Date: 20150326
  Serious: Yes (Other)
  Sender: FDA-Public Use
  Company Number: 2014-US-004942

PATIENT
  Age: 44 Year
  Sex: Female

DRUGS (1)
  1. XYREM [Suspect]
     Active Substance: SODIUM OXYBATE
     Indication: PAIN
     Route: 048
     Dates: start: 200801

REACTIONS (7)
  - Anxiety [None]
  - Off label use [None]
  - Arthralgia [None]
  - Limb discomfort [None]
  - Depression [None]
  - Nasopharyngitis [None]
  - Treatment noncompliance [None]
